FAERS Safety Report 5874488-3 (Version None)
Quarter: 2008Q3

REPORT INFORMATION
  Report Type: 
  Country: None (occurrence: None)
  Receive Date: 20080909
  Receipt Date: 20080827
  Transmission Date: 20090109
  Serious: Yes (Other)
  Sender: FDA-Public Use
  Company Number: PHHY2008BR19391

PATIENT
  Sex: Female
  Weight: 66 kg

DRUGS (1)
  1. HYDERGINE [Suspect]
     Indication: LABYRINTHITIS
     Dosage: 1 TABLET A DAY

REACTIONS (5)
  - ABASIA [None]
  - DIZZINESS [None]
  - RETCHING [None]
  - STOMACH DISCOMFORT [None]
  - TREMOR [None]
